FAERS Safety Report 4576432-8 (Version None)
Quarter: 2005Q1

REPORT INFORMATION
  Report Type: 
  Country: None (occurrence: None)
  Receive Date: 20050119
  Receipt Date: 20040329
  Transmission Date: 20050727
  Serious: Yes (Other)
  Sender: FDA-Public Use
  Company Number: A03200400991

PATIENT
  Age: 63 Year
  Sex: Male
  Weight: 89.3586 kg

DRUGS (7)
  1. PLAVIX [Suspect]
     Indication: CORONARY ARTERY DISEASE
     Dosage: 75 MG QD - ORAL
     Route: 048
     Dates: start: 20030510, end: 20040324
  2. HEPARIN [Suspect]
     Indication: POSTOPERATIVE CARE
     Dosage: INTRAVENOUS NOS
     Route: 042
     Dates: start: 20040101, end: 20040301
  3. HEPARIN [Suspect]
     Indication: STENT PLACEMENT
     Dosage: INTRAVENOUS NOS
     Route: 042
     Dates: start: 20040101, end: 20040301
  4. PRAVASTATIN SODIUM [Concomitant]
  5. ACETYLSALICYLIC ACID SRT [Concomitant]
  6. PRIMIDONE [Concomitant]
  7. EZETIMIBE [Concomitant]
     Indication: STENT PLACEMENT

REACTIONS (5)
  - CONTUSION [None]
  - DRUG INTERACTION [None]
  - HAEMATOCRIT DECREASED [None]
  - HAEMATOMA [None]
  - HAEMORRHAGIC DIATHESIS [None]
